FAERS Safety Report 19366644 (Version 1)
Quarter: 2021Q2

REPORT INFORMATION
  Report Type: Spontaneous
  Country: GB (occurrence: GB)
  Receive Date: 20210603
  Receipt Date: 20210603
  Transmission Date: 20210717
  Serious: Yes (Life-Threatening)
  Sender: FDA-Public Use
  Company Number: GB-TEVA-2021-GB-1917089

PATIENT
  Age: 42 Year
  Sex: Female

DRUGS (3)
  1. CHLORPHENAMINE [Suspect]
     Active Substance: CHLORPHENIRAMINE MALEATE
     Route: 065
  2. ADRENALINE [Concomitant]
     Active Substance: EPINEPHRINE
  3. HYDROCORTISONE. [Suspect]
     Active Substance: HYDROCORTISONE
     Route: 065

REACTIONS (4)
  - Anaphylactic reaction [Unknown]
  - Throat tightness [Unknown]
  - Dyspnoea [Unknown]
  - Tonsillar hypertrophy [Recovered/Resolved]

NARRATIVE: CASE EVENT DATE: 20210523
